FAERS Safety Report 8518444-5 (Version None)
Quarter: 2012Q3

REPORT INFORMATION
  Report Type: 
  Country: None (occurrence: None)
  Receive Date: 20120718
  Receipt Date: 20120308
  Transmission Date: 20120928
  Serious: Yes (Hospitalization)
  Sender: FDA-Public Use
  Company Number: US-BRISTOL-MYERS SQUIBB COMPANY-16444077

PATIENT
  Sex: Male

DRUGS (1)
  1. COUMADIN [Suspect]

REACTIONS (3)
  - PARALYSIS [None]
  - SPINAL CORD HAEMORRHAGE [None]
  - FLANK PAIN [None]
